FAERS Safety Report 7949940-7 (Version None)
Quarter: 2011Q4

REPORT INFORMATION
  Report Type: 
  Country: None (occurrence: None)
  Receive Date: 20111130
  Receipt Date: 20111128
  Transmission Date: 20120403
  Serious: Yes (Death, Hospitalization)
  Sender: FDA-Public Use
  Company Number: FR-BRISTOL-MYERS SQUIBB COMPANY-16012825

PATIENT
  Age: 65 Year
  Sex: Female
  Weight: 47 kg

DRUGS (4)
  1. CISPLATIN [Suspect]
     Indication: NON-SMALL CELL LUNG CANCER
     Route: 042
     Dates: start: 20110817, end: 20110817
  2. CILENGITIDE [Suspect]
     Indication: NON-SMALL CELL LUNG CANCER
     Route: 042
     Dates: start: 20110816, end: 20110816
  3. GEMCITABINE [Suspect]
     Indication: NON-SMALL CELL LUNG CANCER
     Dosage: DAY 1 AND DAY 8 OF EACH 3 WEEK CYCLE INTERRUPTED ON 16AUG2011
     Route: 042
     Dates: start: 20110816, end: 20110816
  4. CETUXIMAB [Suspect]
     Indication: NON-SMALL CELL LUNG CANCER
     Dosage: INTERRUPTED ON 16AUG2011
     Route: 042
     Dates: start: 20110816, end: 20110816

REACTIONS (1)
  - ACUTE RESPIRATORY DISTRESS SYNDROME [None]
